FAERS Safety Report 9740055 (Version 4)
Quarter: 2014Q1

REPORT INFORMATION
  Report Type: Report from Study
  Country: PL (occurrence: PL)
  Receive Date: 20131209
  Receipt Date: 20140220
  Transmission Date: 20141002
  Serious: Yes (Life-Threatening, Hospitalization)
  Sender: FDA-Public Use
  Company Number: PL-BRISTOL-MYERS SQUIBB COMPANY-19889252

PATIENT
  Age: 18 Year
  Sex: Male

DRUGS (1)
  1. ARIPIPRAZOLE [Suspect]
     Indication: SCHIZOPHRENIA
     Dosage: LAST DOSE ON 26-NOV-2013.?9JUL12-28OCT12-112 DAYS?29OCT12-UNK-20MG?25MG
     Route: 048
     Dates: start: 20120709, end: 20131126

REACTIONS (2)
  - Self injurious behaviour [Recovered/Resolved]
  - Schizophrenia [Recovered/Resolved]
